FAERS Safety Report 9517079 (Version 2)
Quarter: 2013Q4

REPORT INFORMATION
  Report Type: Spontaneous
  Country: US (occurrence: US)
  Receive Date: 20130911
  Receipt Date: 20131226
  Transmission Date: 20140711
  Serious: No
  Sender: FDA-Public Use
  Company Number: US-PFIZER INC-2013259989

PATIENT
  Age: 36 Year
  Sex: Female

DRUGS (7)
  1. MORPHINE SULFATE [Suspect]
     Dosage: UNK
  2. ROPINIROLE HYDROCHLORIDE [Suspect]
     Dosage: UNK
  3. CEFTIN [Suspect]
     Dosage: UNK
  4. TYLENOL [Suspect]
     Dosage: UNK
  5. CODEINE [Suspect]
     Dosage: UNK
  6. COMPAZINE [Suspect]
     Dosage: UNK
  7. HALDOL [Suspect]
     Dosage: UNK

REACTIONS (1)
  - Drug hypersensitivity [Unknown]
